FAERS Safety Report 14040581 (Version 9)
Quarter: 2018Q4

REPORT INFORMATION
  Report Type: Spontaneous
  Country: NL (occurrence: NL)
  Receive Date: 20171004
  Receipt Date: 20181218
  Transmission Date: 20190204
  Serious: Yes (Life-Threatening, Hospitalization, Other)
  Sender: FDA-Public Use
  Company Number: NL-ELI_LILLY_AND_COMPANY-NL201710000415

PATIENT
  Age: 51 Year
  Sex: Female
  Weight: 64 kg

DRUGS (14)
  1. ESOMEPRAZOL                        /01479301/ [Concomitant]
     Active Substance: ESOMEPRAZOLE
     Dosage: 20 MG, BID
  2. CELECOXIB. [Concomitant]
     Active Substance: CELECOXIB
     Indication: PRODUCT USED FOR UNKNOWN INDICATION
     Dosage: 200 MG, BID
     Route: 048
  3. FLUOXETINE HYDROCHLORIDE. [Suspect]
     Active Substance: FLUOXETINE HYDROCHLORIDE
     Indication: DEPRESSION
     Dosage: 20 MG, DAILY
     Route: 048
     Dates: start: 20170907, end: 20170922
  4. FLUOXETINE HYDROCHLORIDE. [Interacting]
     Active Substance: FLUOXETINE HYDROCHLORIDE
     Dosage: 40 MG, DAILY
     Route: 048
     Dates: start: 20170923, end: 20170924
  5. PLAQUENIL [Interacting]
     Active Substance: HYDROXYCHLOROQUINE SULFATE
     Indication: DEPRESSION
  6. NASACORT [Concomitant]
     Active Substance: TRIAMCINOLONE ACETONIDE
     Indication: PRODUCT USED FOR UNKNOWN INDICATION
     Dosage: 1 DF, DAILY
     Route: 045
  7. OXAZEPAM. [Concomitant]
     Active Substance: OXAZEPAM
     Indication: PRODUCT USED FOR UNKNOWN INDICATION
     Dosage: 10 MG, PRN
     Route: 048
  8. PLAQUENIL [Interacting]
     Active Substance: HYDROXYCHLOROQUINE SULFATE
     Indication: RHEUMATOID ARTHRITIS
     Dosage: 200 MG, BID
     Route: 048
     Dates: start: 20161018, end: 20170924
  9. CELECOXIB. [Concomitant]
     Active Substance: CELECOXIB
     Dosage: 100 MG, BID
  10. FLUOXETINE HYDROCHLORIDE. [Interacting]
     Active Substance: FLUOXETINE HYDROCHLORIDE
     Dosage: 40 MG, DAILY
     Route: 048
     Dates: start: 20170907, end: 20170923
  11. FLUOXETINE HYDROCHLORIDE. [Interacting]
     Active Substance: FLUOXETINE HYDROCHLORIDE
     Dosage: 40 MG, DAILY
     Route: 048
     Dates: start: 20170905, end: 20170924
  12. ETHINYLESTRADIOL/DESOGESTREL [Concomitant]
     Active Substance: DESOGESTREL\ETHINYL ESTRADIOL
     Indication: PRODUCT USED FOR UNKNOWN INDICATION
     Dosage: 1 DF, DAILY
     Route: 048
  13. ESOMEPRAZOL                        /01479301/ [Concomitant]
     Active Substance: ESOMEPRAZOLE
     Indication: PRODUCT USED FOR UNKNOWN INDICATION
     Dosage: 40 MG, BID
     Route: 048
  14. ZOPICLON [Concomitant]
     Active Substance: ZOPICLONE
     Indication: PRODUCT USED FOR UNKNOWN INDICATION
     Dosage: 7.5 MG, PRN
     Route: 048

REACTIONS (2)
  - Drug interaction [Recovering/Resolving]
  - Serotonin syndrome [Recovering/Resolving]

NARRATIVE: CASE EVENT DATE: 20170923
